FAERS Safety Report 12198342 (Version 1)
Quarter: 2016Q1

REPORT INFORMATION
  Report Type: Spontaneous
  Country: US (occurrence: None)
  Receive Date: 20160321
  Receipt Date: 20160321
  Transmission Date: 20160526
  Serious: Yes (Other)
  Sender: FDA-Public Use
  Company Number: None

PATIENT
  Age: 69 Year
  Sex: Female
  Weight: 57.15 kg

DRUGS (12)
  1. ARMOUR THYROID [Concomitant]
     Active Substance: THYROID, PORCINE
  2. COQ10 [Concomitant]
     Active Substance: UBIDECARENONE
  3. VIT B [Concomitant]
     Active Substance: VITAMIN B
  4. MACULAR FORMULAR [Concomitant]
  5. TAMIFLU [Suspect]
     Active Substance: OSELTAMIVIR PHOSPHATE
     Indication: INFLUENZA
     Dosage: 1 PILL TWICE DAILY TAKEN BY MOUTH
     Route: 048
     Dates: start: 20160314, end: 20160315
  6. ASTRALAGUS TURMERIC PROBIOTICS [Concomitant]
  7. CAL-MAG 1:1 CAPSULE [Concomitant]
     Active Substance: CALCIUM\MAGNESIUM
  8. TURMERIC [Concomitant]
     Active Substance: TURMERIC
  9. LORAZAPAM [Concomitant]
     Active Substance: LORAZEPAM
  10. VITAMIN C [Concomitant]
     Active Substance: ASCORBIC ACID
  11. FLAXSEED [Concomitant]
     Active Substance: FLAX SEED
  12. OMEGA THREES PERRILLA OIL [Concomitant]

REACTIONS (7)
  - Rash pustular [None]
  - Blister [None]
  - Product quality issue [None]
  - Feeling abnormal [None]
  - Headache [None]
  - Rash pruritic [None]
  - Balance disorder [None]

NARRATIVE: CASE EVENT DATE: 20160314
